FAERS Safety Report 11180688 (Version 2)
Quarter: 2015Q3

REPORT INFORMATION
  Report Type: Spontaneous
  Country: FR (occurrence: FR)
  Receive Date: 20150611
  Receipt Date: 20150807
  Transmission Date: 20151125
  Serious: Yes (Hospitalization)
  Sender: FDA-Public Use
  Company Number: FR-ASTRAZENECA-2015SE55451

PATIENT
  Age: 86 Year
  Sex: Male

DRUGS (15)
  1. DAFALGAN [Suspect]
     Active Substance: ACETAMINOPHEN
     Route: 048
  2. FLECTOR [Suspect]
     Active Substance: DICLOFENAC EPOLAMINE
     Route: 061
  3. SYMBICORT [Suspect]
     Active Substance: BUDESONIDE\FORMOTEROL FUMARATE DIHYDRATE
     Route: 055
  4. DUROGESIC [Suspect]
     Active Substance: FENTANYL
     Route: 062
  5. VITAMINE B1 B6 BAYER [Suspect]
     Active Substance: PYRIDOXINE HYDROCHLORIDE\THIAMINE HYDROCHLORIDE
     Route: 048
  6. AERIUS [Suspect]
     Active Substance: DESLORATADINE
     Route: 048
  7. RILMENIDINE [Suspect]
     Active Substance: RILMENIDINE
     Route: 048
  8. NOVONORM [Suspect]
     Active Substance: REPAGLINIDE
     Route: 048
  9. INEXIUM [Suspect]
     Active Substance: ESOMEPRAZOLE
     Route: 048
  10. ULTRALEVURE [Suspect]
     Active Substance: SACCHAROMYCES CEREVISIAE
     Route: 048
  11. NITRIDERM [Suspect]
     Active Substance: NITROGLYCERIN
     Route: 062
  12. STABLON [Suspect]
     Active Substance: TIANEPTINE
     Route: 048
  13. CARDENSIEL [Suspect]
     Active Substance: BISOPROLOL FUMARATE
     Route: 048
  14. TEMESTA [Suspect]
     Active Substance: LORAZEPAM
     Route: 048
  15. VENTOLINE [Suspect]
     Active Substance: ALBUTEROL
     Route: 055

REACTIONS (7)
  - Prurigo [Recovering/Resolving]
  - Thrombocytopenia [Unknown]
  - Pemphigoid [Recovering/Resolving]
  - Anti-glomerular basement membrane antibody positive [Unknown]
  - Antibody test positive [Unknown]
  - Lymphocytosis [Unknown]
  - Beta 2 microglobulin increased [Unknown]
